FAERS Safety Report 4492190-X (Version None)
Quarter: 2004Q4

REPORT INFORMATION
  Report Type: 
  Country: None (occurrence: None)
  Receive Date: 20041101
  Receipt Date: 20041015
  Transmission Date: 20050328
  Serious: Yes (Hospitalization)
  Sender: FDA-Public Use
  Company Number: DSA_60452_2004

PATIENT
  Age: 74 Year
  Sex: Male
  Weight: 88.4 kg

DRUGS (8)
  1. PRIMIDONE [Suspect]
     Indication: TREMOR
     Dosage: 250 MG QDAY PO
     Route: 048
     Dates: start: 20040901, end: 20041003
  2. PRIMIDONE [Suspect]
     Indication: TREMOR
     Dosage: 25 MG QDAY PO
     Route: 048
     Dates: start: 20041004
  3. COUMADIN [Concomitant]
  4. VERAPAMIL [Concomitant]
  5. PROSCAR [Concomitant]
  6. INHALERS [Concomitant]
  7. PROZAC [Concomitant]
  8. ACTIVAN [Concomitant]

REACTIONS (7)
  - ABDOMINAL PAIN UPPER [None]
  - ANOREXIA [None]
  - FATIGUE [None]
  - HYPERHIDROSIS [None]
  - INTESTINAL POLYP [None]
  - NAUSEA [None]
  - OESOPHAGEAL SPASM [None]
